FAERS Safety Report 4423960-1 (Version None)
Quarter: 2004Q3

REPORT INFORMATION
  Report Type: 
  Country: None (occurrence: None)
  Receive Date: 20040805
  Receipt Date: 20040729
  Transmission Date: 20050211
  Serious: Yes (Hospitalization)
  Sender: FDA-Public Use
  Company Number: EM2004-0392

PATIENT
  Age: 41 Year
  Sex: Male

DRUGS (3)
  1. MACROLIN [Suspect]
     Indication: HIV INFECTION
     Dosage: 3 AMP, QD, SUBCUTAN.
     Route: 058
     Dates: start: 20040622, end: 20040625
  2. BACTRIM [Concomitant]
  3. ANTIVIRALS FOR SYSTEMIC USE (TRIZIVIR) [Concomitant]

REACTIONS (5)
  - CD4 LYMPHOCYTES DECREASED [None]
  - MYALGIA [None]
  - PYREXIA [None]
  - RASH MACULO-PAPULAR [None]
  - TOXIC SKIN ERUPTION [None]
